FAERS Safety Report 12989070 (Version 1)
Quarter: 2016Q4

REPORT INFORMATION
  Report Type: Spontaneous
  Country: ES (occurrence: ES)
  Receive Date: 20161201
  Receipt Date: 20161201
  Transmission Date: 20170207
  Serious: Yes (Life-Threatening, Hospitalization, Other)
  Sender: FDA-Public Use
  Company Number: PHHY2016ES160759

PATIENT
  Age: 34 Year
  Sex: Male

DRUGS (2)
  1. ZARZIO [Suspect]
     Active Substance: FILGRASTIM
     Indication: NEUTROPENIA
     Dosage: 300 UG, TID
     Route: 058
     Dates: start: 20160513, end: 20160718
  2. TEMODAL [Concomitant]
     Active Substance: TEMOZOLOMIDE
     Indication: OLIGODENDROGLIOMA
     Dosage: 240 MG, QD
     Route: 065
     Dates: start: 20160701

REACTIONS (4)
  - Vasculitis [Unknown]
  - Myocarditis [Recovered/Resolved]
  - Enteritis [Recovered/Resolved]
  - Pyrexia [Recovered/Resolved]

NARRATIVE: CASE EVENT DATE: 20160720
